FAERS Safety Report 7479293-2 (Version None)
Quarter: 2011Q2

REPORT INFORMATION
  Report Type: 
  Country: None (occurrence: None)
  Receive Date: 20110513
  Receipt Date: 20110505
  Transmission Date: 20111010
  Serious: Yes (Hospitalization, Other)
  Sender: FDA-Public Use
  Company Number: FR-PFIZER INC-2005033672

PATIENT
  Age: 75 Year
  Sex: Female

DRUGS (14)
  1. PROZAC [Suspect]
     Indication: DYSTHYMIC DISORDER
     Dosage: 20 MG, 1X/DAY
     Route: 048
     Dates: end: 20041206
  2. ZOLPIDEM [Concomitant]
     Dosage: 1 DF, 1X/DAY
     Route: 048
     Dates: end: 20041206
  3. PIASCLEDINE [Concomitant]
     Dosage: UNK
     Dates: end: 20041206
  4. FELDENE [Suspect]
     Indication: OSTEOARTHRITIS
  5. PLAVIX [Suspect]
     Indication: PROPHYLAXIS
     Dosage: 1 DF, 1X/DAY
     Route: 048
     Dates: end: 20041206
  6. DIAMICRON [Suspect]
     Indication: DIABETES MELLITUS
     Route: 048
     Dates: end: 20041206
  7. LEXOMIL [Concomitant]
     Dosage: 0.25 DF, 1X/DAY
     Route: 048
     Dates: end: 20041206
  8. CAPTOPRIL AND HYDROCHLOROTHIAZIDE [Suspect]
     Indication: ESSENTIAL HYPERTENSION
     Dosage: 0.5 DF, 1X/DAY
     Route: 048
     Dates: end: 20041206
  9. TANAKAN [Concomitant]
     Dosage: 3 DF DAILY
     Route: 048
     Dates: end: 20041206
  10. ACETAMINOPHEN [Concomitant]
     Dosage: 1 G, 4X/DAY
     Dates: end: 20041206
  11. FELDENE [Suspect]
     Indication: BACK PAIN
     Route: 030
     Dates: start: 20041202, end: 20041206
  12. BISOPROLOL FUMARATE [Suspect]
     Indication: ESSENTIAL HYPERTENSION
     Route: 048
     Dates: end: 20041206
  13. VEINAMITOL [Suspect]
  14. ZOCOR [Concomitant]
     Dosage: 0.5 DF, 1X/DAY
     Route: 048
     Dates: end: 20041206

REACTIONS (3)
  - HYPONATRAEMIA [None]
  - CONVULSION [None]
  - HYPOKALAEMIA [None]
